FAERS Safety Report 20903022 (Version 1)
Quarter: 2022Q2

REPORT INFORMATION
  Report Type: Spontaneous
  Country: CA (occurrence: CA)
  Receive Date: 20220601
  Receipt Date: 20220601
  Transmission Date: 20220721
  Serious: Yes (Other)
  Sender: FDA-Public Use
  Company Number: CA-VERTEX PHARMACEUTICALS-2022-008155

PATIENT
  Age: 12 Year
  Sex: Female
  Weight: 42 kg

DRUGS (5)
  1. TRIKAFTA [Suspect]
     Active Substance: ELEXACAFTOR\IVACAFTOR\TEZACAFTOR
     Indication: Cystic fibrosis
     Dosage: 2.0 DOSAGE FORMS(1 EVERY 1 DAY);150MG(1 EVERY ONE DAY)
     Route: 048
  2. CICLESONIDE [Concomitant]
     Active Substance: CICLESONIDE
  3. POLYETHYLENE GLYCOL [Concomitant]
     Active Substance: POLYETHYLENE GLYCOL
  4. ALBUTEROL [Concomitant]
     Active Substance: ALBUTEROL
     Route: 042
  5. VITAMIN D [Concomitant]
     Active Substance: VITAMIN D NOS

REACTIONS (2)
  - Blood bilirubin increased [Recovered/Resolved]
  - Jaundice [Recovered/Resolved]
